FAERS Safety Report 10241332 (Version 1)
Quarter: 2014Q2

REPORT INFORMATION
  Report Type: Spontaneous
  Country: US (occurrence: US)
  Receive Date: 20140617
  Receipt Date: 20140617
  Transmission Date: 20141212
  Serious: No
  Sender: FDA-Public Use
  Company Number: US-PFIZER INC-2014161920

PATIENT
  Age: 64 Year
  Sex: Female
  Weight: 106.58 kg

DRUGS (9)
  1. LYRICA [Suspect]
     Indication: NEUROPATHY PERIPHERAL
     Dosage: 50 MG, 3X/DAY
     Route: 048
     Dates: start: 201404, end: 2014
  2. LYRICA [Suspect]
     Dosage: 50 MG, 2X/DAY
     Route: 048
     Dates: start: 2014
  3. MOTRIN [Concomitant]
     Indication: ARTHRALGIA
     Dosage: 600 MG (TWO TO THREE TIMES A DAY), UNK
  4. REQUIP [Concomitant]
     Indication: RESTLESS LEGS SYNDROME
     Dosage: 0.5 MG (BY TAKING TWO ORAL TABLETS OF 0.25MG EACH TOGETHER), 1X/DAY
     Route: 048
  5. LOVASTATIN [Concomitant]
     Dosage: 20 MG, 1X/DAY
  6. PRILOSEC [Concomitant]
     Dosage: 10 MG (2- 4 TIMES A DAY), UNK
  7. DESIPRAMINE [Concomitant]
     Indication: HERNIA
     Dosage: 25 MG, 2X/DAY
  8. ADVAIR [Concomitant]
     Indication: ASTHMA
     Dosage: TWO PUFFS, 1X/DAY
  9. ALBUTEROL [Concomitant]
     Indication: COUGH
     Dosage: UNK

REACTIONS (4)
  - Agitation [Unknown]
  - Tremor [Unknown]
  - Nervousness [Unknown]
  - Insomnia [Unknown]
